FAERS Safety Report 13844336 (Version 1)
Quarter: 2017Q3

REPORT INFORMATION
  Report Type: Report from Study
  Country: US (occurrence: US)
  Receive Date: 20170808
  Receipt Date: 20170808
  Transmission Date: 20171127
  Serious: No
  Sender: FDA-Public Use
  Company Number: GXBR2017US002186

PATIENT
  Sex: Male

DRUGS (1)
  1. OMNITROPE [Suspect]
     Active Substance: SOMATROPIN
     Indication: GROWTH HORMONE DEFICIENCY
     Dosage: 1.2 MG, QD (1.2 MG X 7 DAYS A WEEK)
     Route: 058
     Dates: start: 20170705

REACTIONS (2)
  - Needle issue [Unknown]
  - Injection site pain [Not Recovered/Not Resolved]
